FAERS Safety Report 5614034-2 (Version None)
Quarter: 2008Q1

REPORT INFORMATION
  Report Type: 
  Country: None (occurrence: None)
  Receive Date: 20080205
  Receipt Date: 20080128
  Transmission Date: 20080703
  Serious: Yes (Hospitalization)
  Sender: FDA-Public Use
  Company Number: FR-ROCHE-543980

PATIENT
  Age: 84 Year
  Sex: Female

DRUGS (2)
  1. APRANAX [Suspect]
     Indication: DRUG USE FOR UNKNOWN INDICATION
     Route: 048
     Dates: start: 20071206, end: 20071214
  2. ART 50 [Concomitant]
     Dosage: LONG-TERM TREATMENT NOT MODIFIED.

REACTIONS (2)
  - FALL [None]
  - RENAL FAILURE ACUTE [None]
